FAERS Safety Report 7473105-9 (Version None)
Quarter: 2011Q1

REPORT INFORMATION
  Report Type: 
  Country: None (occurrence: None)
  Receive Date: 20110302
  Receipt Date: 20101201
  Transmission Date: 20110831
  Serious: Yes (Death)
  Sender: FDA-Public Use
  Company Number: 163-21880-10120509

PATIENT
  Age: 64 Year
  Sex: Male

DRUGS (10)
  1. PLENDIL [Concomitant]
  2. MINOXIDIL [Concomitant]
  3. VELCADE [Concomitant]
  4. INSULIN (INSULIN) [Concomitant]
  5. VICODIN [Concomitant]
  6. LOPRESSOR [Concomitant]
  7. REVLIMID [Suspect]
     Indication: MULTIPLE MYELOMA
     Dosage: 5 MG, 1 IN 1 D, PO
     Route: 048
     Dates: start: 20071101, end: 20100201
  8. EPOGEN [Concomitant]
  9. SEVELAMER (SEVELAMER) [Concomitant]
  10. ACTOS [Concomitant]

REACTIONS (1)
  - BLOOD IMMUNOGLOBULIN A INCREASED [None]
